FAERS Safety Report 7810258-4 (Version None)
Quarter: 2011Q4

REPORT INFORMATION
  Report Type: 
  Country: None (occurrence: None)
  Receive Date: 20111012
  Receipt Date: 20111010
  Transmission Date: 20120403
  Serious: Yes (Other)
  Sender: FDA-Public Use
  Company Number: NZ-ABBOTT-11P-118-0846970-00

PATIENT
  Sex: Female
  Weight: 75 kg

DRUGS (2)
  1. HUMIRA [Suspect]
  2. HUMIRA [Suspect]
     Indication: PSORIASIS
     Dates: start: 20101126, end: 20110531

REACTIONS (8)
  - CHEST PAIN [None]
  - GENERAL PHYSICAL CONDITION ABNORMAL [None]
  - DYSPNOEA [None]
  - SENSORY DISTURBANCE [None]
  - MYOCARDIAL INFARCTION [None]
  - PARAESTHESIA [None]
  - PNEUMONIA [None]
  - HYPOAESTHESIA [None]
